FAERS Safety Report 5689943-9 (Version None)
Quarter: 2008Q1

REPORT INFORMATION
  Report Type: 
  Country: None (occurrence: None)
  Receive Date: 20080331
  Receipt Date: 20080331
  Transmission Date: 20080703
  Serious: Yes (Hospitalization)
  Sender: FDA-Public Use
  Company Number: None

PATIENT
  Sex: Female
  Weight: 58.2 kg

DRUGS (2)
  1. TAXOL [Suspect]
     Dosage: 256 MG
  2. G-CSF (FILGRASTIM, AMGEN) [Suspect]
     Dosage: 6 MG

REACTIONS (4)
  - CATHETER RELATED INFECTION [None]
  - FEBRILE NEUTROPENIA [None]
  - STAPHYLOCOCCAL INFECTION [None]
  - THERAPEUTIC PRODUCT CONTAMINATION [None]
